FAERS Safety Report 9916280 (Version 1)
Quarter: 2014Q1

REPORT INFORMATION
  Report Type: Spontaneous
  Country: US (occurrence: US)
  Receive Date: 20140221
  Receipt Date: 20140221
  Transmission Date: 20141002
  Serious: No
  Sender: FDA-Public Use
  Company Number: US-BAYER-2014-026422

PATIENT
  Age: 26 Year
  Sex: Female
  Weight: 51 kg

DRUGS (1)
  1. ALEVE CAPLET [Suspect]
     Dosage: UNK
     Dates: start: 2004, end: 200409

REACTIONS (3)
  - Oesophageal pain [None]
  - Oesophageal discomfort [None]
  - Flatulence [None]
